FAERS Safety Report 5801646-6 (Version None)
Quarter: 2008Q3

REPORT INFORMATION
  Report Type: 
  Country: None (occurrence: None)
  Receive Date: 20080707
  Receipt Date: 20080624
  Transmission Date: 20090109
  Serious: Yes (Other)
  Sender: FDA-Public Use
  Company Number: B0360774A

PATIENT
  Age: 23 Year
  Sex: Female

DRUGS (22)
  1. PAROXETINE HCL [Suspect]
     Route: 065
     Dates: start: 19980429
  2. RISPERIDONE [Suspect]
     Dates: start: 20070501
  3. EFFEXOR [Concomitant]
     Dates: start: 20030801
  4. LORMETAZEPAM [Concomitant]
     Dates: start: 19990126
  5. LORAZEPAM [Concomitant]
     Dates: start: 20050318
  6. DIAZEPAM [Concomitant]
     Dates: start: 20050316
  7. GAMANIL [Concomitant]
     Dates: start: 20050401
  8. PROTHIADEN [Concomitant]
     Dates: start: 20050422
  9. ISOTRETINOIN [Concomitant]
     Dates: start: 19970401
  10. AMITRIPTYLINE HCL [Concomitant]
     Dates: start: 19971001
  11. FLUOXETINE [Concomitant]
     Dates: start: 19980101
  12. ORLISTAT [Concomitant]
     Dates: start: 20040801
  13. DOSULEPINE [Concomitant]
     Dates: start: 20050401
  14. QUETIAPINE FUMARATE [Concomitant]
     Dates: start: 20050701
  15. DULOXETINE [Concomitant]
     Dates: start: 20060501
  16. REBOXETINE [Concomitant]
     Dates: start: 20060701
  17. CITALOPRAM HYDROBROMIDE [Concomitant]
     Dates: start: 20061201
  18. TRAZODONE HCL [Concomitant]
     Dates: start: 20061201
  19. MIRTAZAPINE [Concomitant]
     Dates: start: 20070201
  20. METHADON HCL TAB [Concomitant]
  21. FLUOXETINE [Concomitant]
     Dates: start: 20071101
  22. DIHYDROCODEINE [Concomitant]

REACTIONS (28)
  - AGGRESSION [None]
  - AGITATION [None]
  - BALANCE DISORDER [None]
  - CONFUSIONAL STATE [None]
  - DEPRESSED MOOD [None]
  - DIARRHOEA [None]
  - DIZZINESS [None]
  - DYSKINESIA [None]
  - FATIGUE [None]
  - HAIR DISORDER [None]
  - HEAD INJURY [None]
  - HYPERHIDROSIS [None]
  - INFLUENZA [None]
  - INTENTIONAL SELF-INJURY [None]
  - LETHARGY [None]
  - MEMORY IMPAIRMENT [None]
  - OVERDOSE [None]
  - PANIC ATTACK [None]
  - PARAESTHESIA [None]
  - SKIN INJURY [None]
  - SLEEP DISORDER [None]
  - SOMNOLENCE [None]
  - SUICIDAL BEHAVIOUR [None]
  - SUICIDAL IDEATION [None]
  - VERTIGO [None]
  - VISION BLURRED [None]
  - VOMITING [None]
  - WITHDRAWAL SYNDROME [None]
